FAERS Safety Report 14310182 (Version 5)
Quarter: 2019Q2

REPORT INFORMATION
  Report Type: Spontaneous
  Country: US (occurrence: US)
  Receive Date: 20171220
  Receipt Date: 20190412
  Transmission Date: 20190711
  Serious: No
  Sender: FDA-Public Use
  Company Number: US-ACTELION-A-US2017-164511

PATIENT
  Age: 64 Year
  Sex: Female

DRUGS (8)
  1. METFORMIN [Concomitant]
     Active Substance: METFORMIN HYDROCHLORIDE
  2. IRBESARTAN. [Concomitant]
     Active Substance: IRBESARTAN
  3. PROMETHAZINE - CODEINE [Concomitant]
     Active Substance: CODEINE\PROMETHAZINE
  4. TRACLEER [Suspect]
     Active Substance: BOSENTAN
     Indication: PULMONARY ARTERIAL HYPERTENSION
     Dosage: 125 MG, BID
     Route: 048
     Dates: start: 20130624
  5. SILDENAFIL. [Concomitant]
     Active Substance: SILDENAFIL
  6. ALPHAGAN P [Suspect]
     Active Substance: BRIMONIDINE TARTRATE
     Indication: GLAUCOMA
  7. LATANOPROST. [Concomitant]
     Active Substance: LATANOPROST
  8. WARFARIN [Concomitant]
     Active Substance: WARFARIN

REACTIONS (10)
  - Glaucoma [Not Recovered/Not Resolved]
  - Peripheral swelling [Unknown]
  - Pyrexia [Unknown]
  - Dizziness [Unknown]
  - Cough [Unknown]
  - Eye swelling [Unknown]
  - Visual impairment [Not Recovered/Not Resolved]
  - Choking sensation [Unknown]
  - Product dose omission [Unknown]
  - Flushing [Unknown]

NARRATIVE: CASE EVENT DATE: 2018
